FAERS Safety Report 23564492 (Version 1)
Quarter: 2024Q1

REPORT INFORMATION
  Report Type: Spontaneous
  Country: CN (occurrence: None)
  Receive Date: 20240226
  Receipt Date: 20240226
  Transmission Date: 20240410
  Serious: Yes (Hospitalization, Other)
  Sender: FDA-Public Use
  Company Number: CN-ACS-20240054

PATIENT
  Age: 66 Year
  Sex: Male
  Weight: 47.5 kg

DRUGS (4)
  1. METHOTREXATE [Interacting]
     Active Substance: METHOTREXATE
     Indication: Rheumatoid arthritis
     Dosage: LOW-DOSE
  2. CEPHALOTHIN [Interacting]
     Active Substance: CEPHALOTHIN
     Indication: Antibiotic therapy
  3. DEXKETOPROFEN [Interacting]
     Active Substance: DEXKETOPROFEN
     Indication: Arthralgia
  4. MEROPENEM [Interacting]
     Active Substance: MEROPENEM
     Indication: Antibiotic therapy

REACTIONS (3)
  - Immunosuppressant drug level increased [Recovered/Resolved]
  - Drug interaction [Recovered/Resolved]
  - Pancytopenia [Recovered/Resolved]
